FAERS Safety Report 24718908 (Version 4)
Quarter: 2025Q1

REPORT INFORMATION
  Report Type: Spontaneous
  Country: UY (occurrence: UY)
  Receive Date: 20241210
  Receipt Date: 20250304
  Transmission Date: 20250408
  Serious: No
  Sender: PFIZER
  Company Number: UY-PFIZER INC-PV202400158690

PATIENT
  Age: 14 Year
  Sex: Male

DRUGS (1)
  1. GENOTROPIN [Suspect]
     Active Substance: SOMATROPIN
     Indication: Growth hormone deficiency
     Dosage: 0.6 TO 1 MG, DAILY
     Dates: start: 20141113

REACTIONS (2)
  - Device mechanical issue [Not Recovered/Not Resolved]
  - Drug dose omission by device [Not Recovered/Not Resolved]

NARRATIVE: CASE EVENT DATE: 20241102
